FAERS Safety Report 8051462-2 (Version None)
Quarter: 2012Q1

REPORT INFORMATION
  Report Type: 
  Country: None (occurrence: None)
  Receive Date: 20120117
  Receipt Date: 20120106
  Transmission Date: 20120608
  Serious: Yes (Hospitalization, Other)
  Sender: FDA-Public Use
  Company Number: US-ASTRAZENECA-2011SE68103

PATIENT
  Age: 53 Year
  Sex: Female

DRUGS (2)
  1. NEXIUM [Suspect]
     Route: 048
  2. PRILOSEC [Suspect]
     Route: 048

REACTIONS (23)
  - GASTROOESOPHAGEAL REFLUX DISEASE [None]
  - APHAGIA [None]
  - MAJOR DEPRESSION [None]
  - BACK PAIN [None]
  - DYSPEPSIA [None]
  - ABDOMINAL PAIN UPPER [None]
  - CARDIAC FAILURE CONGESTIVE [None]
  - CARDIOMYOPATHY [None]
  - REGURGITATION [None]
  - FEELING ABNORMAL [None]
  - DRUG DOSE OMISSION [None]
  - CHEST PAIN [None]
  - VOMITING [None]
  - DEHYDRATION [None]
  - BARRETT'S OESOPHAGUS [None]
  - HEART RATE INCREASED [None]
  - ARTHRITIS [None]
  - FIBROMYALGIA [None]
  - CRYING [None]
  - MIGRAINE [None]
  - WEIGHT DECREASED [None]
  - MALAISE [None]
  - DRUG INEFFECTIVE [None]
